FAERS Safety Report 21247275 (Version 1)
Quarter: 2022Q3

REPORT INFORMATION
  Report Type: Spontaneous
  Country: DE (occurrence: DE)
  Receive Date: 20220824
  Receipt Date: 20220824
  Transmission Date: 20221027
  Serious: Yes (Other)
  Sender: FDA-Public Use
  Company Number: DE-Accord-274703

PATIENT
  Age: 76 Year
  Sex: Female

DRUGS (7)
  1. CLOPIDOGREL [Suspect]
     Active Substance: CLOPIDOGREL BISULFATE
     Indication: Acute myocardial infarction
     Dosage: 1 X 75 MG/D
  2. AMIODARONE [Suspect]
     Active Substance: AMIODARONE
     Indication: Acute myocardial infarction
     Dosage: INITIAL DOSE OF 3 X 200 MG/D AND REDUCTION TO 1 X 200 MG/D AFTER 14 DAYS.
  3. APIXABAN [Concomitant]
     Active Substance: APIXABAN
     Indication: Acute myocardial infarction
     Dosage: 2 X 2.5 MG/D
  4. FLECAINIDE [Concomitant]
     Active Substance: FLECAINIDE
     Indication: Atrial fibrillation
     Dosage: 2 X 50 MG/D
  5. AMLODIPINE [Concomitant]
     Active Substance: AMLODIPINE BESYLATE
  6. RAMIPRIL [Concomitant]
     Active Substance: RAMIPRIL
  7. METOPROLOL [Concomitant]
     Active Substance: METOPROLOL

REACTIONS (1)
  - Cutaneous vasculitis [Recovered/Resolved]
